FAERS Safety Report 4824478-4 (Version None)
Quarter: 2005Q4

REPORT INFORMATION
  Report Type: 
  Country: None (occurrence: None)
  Receive Date: 20051110
  Receipt Date: 20051102
  Transmission Date: 20060501
  Serious: Yes (Hospitalization, Other)
  Sender: FDA-Public Use
  Company Number: US-RB-2274-2005

PATIENT
  Sex: Female
  Weight: 113.95 kg

DRUGS (69)
  1. SUBOXONE [Suspect]
     Dosage: 1300  2MG; 1320 8MG; 1415 8MG; 1515 4MG; 2200 4MG
     Route: 060
     Dates: start: 20051019, end: 20051019
  2. SUBOXONE [Interacting]
     Dosage: 0600 8MG; 0830 10MG; 1800 10MG.
     Route: 060
     Dates: start: 20051020, end: 20051020
  3. SUBOXONE [Interacting]
     Dosage: 0830 10MG; 1800 10MG
     Route: 060
     Dates: start: 20051021, end: 20051021
  4. SUBOXONE [Interacting]
     Dosage: 0830 8MG; 1800 8MG.
     Route: 060
     Dates: start: 20051022, end: 20051023
  5. SUBOXONE [Interacting]
     Dosage: 24-OCT-2005 - 0830 4MG; 1000 6MG; 1800 4MG.25-OCT-2005 - 0830 10MG; 1700 4MG.
     Route: 060
     Dates: start: 20051024, end: 20051025
  6. SUBOXONE [Interacting]
     Dosage: 0830 8MG; 1700 4MG; 1735 4MG.
     Route: 060
     Dates: start: 20051026, end: 20051026
  7. SUBOXONE [Interacting]
     Dosage: 0830 4MG; 1700 4MG.
     Route: 060
     Dates: start: 20051027, end: 20051027
  8. SUBOXONE [Interacting]
     Dosage: 0830 6MG; 2255 2MG.
     Route: 060
     Dates: start: 20051028, end: 20051028
  9. PROCHLORPERAZINE EDISYLATE [Concomitant]
     Route: 030
     Dates: start: 20051019, end: 20051019
  10. DROPERIDOL [Concomitant]
     Dosage: 1500 1.25MG; 1600 1.25MG; 1830 1.25MG.
     Route: 030
     Dates: start: 20051019, end: 20051019
  11. DROPERIDOL [Concomitant]
     Dosage: 0900 1.25MG; 1800 2.5MG.
     Route: 030
     Dates: start: 20051020, end: 20051020
  12. DROPERIDOL [Concomitant]
     Dosage: 0450 1.25MG
     Route: 030
     Dates: start: 20051022, end: 20051022
  13. DIPHENHYDRAMINE HCL [Concomitant]
     Route: 030
     Dates: start: 20051019, end: 20051019
  14. DIPHENHYDRAMINE HCL [Concomitant]
     Dosage: 0200 25MG; 0800 50MG; 0900 25MG IM; 1400, 1600, 2000, 2400 25MG.
     Route: 048
     Dates: start: 20051020, end: 20051020
  15. DIPHENHYDRAMINE HCL [Concomitant]
     Dosage: 1200, 1600, 2000 25MG EACH
     Route: 048
     Dates: start: 20051021, end: 20051021
  16. DIPHENHYDRAMINE HCL [Concomitant]
     Dosage: 0800, 1200, 1600, 2000 25MG EACH
     Route: 048
     Dates: start: 20051022, end: 20051022
  17. DICYCLOMINE HCL [Concomitant]
     Indication: IRRITABLE BOWEL SYNDROME
     Dosage: 2200 20MG.
     Route: 048
     Dates: start: 20051019, end: 20051019
  18. DICYCLOMINE HCL [Concomitant]
     Dosage: 1400 20MG; 2200 20MG.
     Route: 048
     Dates: start: 20051020, end: 20051020
  19. DICYCLOMINE HCL [Concomitant]
     Dosage: 0600, 1400, 2200 DOSED 20MG ON 21,22 + 23-OCT-2005
     Route: 048
     Dates: start: 20051021, end: 20051023
  20. DICYCLOMINE HCL [Concomitant]
     Dosage: 0600, 1400 20MG EACH
     Route: 048
     Dates: start: 20051024, end: 20051024
  21. KETOROLAC TROMETHAMINE [Concomitant]
     Dosage: 21-OCT 1030 60MG; 22-OCT 1100 60MG; 24-OCT 1830 60MG;
     Route: 030
     Dates: start: 20051021, end: 20051024
  22. KETOROLAC TROMETHAMINE [Concomitant]
     Dosage: 0530, 1930 60MG EACH
     Route: 030
     Dates: start: 20051025, end: 20051025
  23. KETOROLAC TROMETHAMINE [Concomitant]
     Dosage: 26-OCT 1200 60MG, 27-OCT 0900 60MG
     Route: 030
     Dates: start: 20051026, end: 20051027
  24. TRIMETHOPRIM-SULFAMETHOXAZOLE [Concomitant]
     Indication: URINARY TRACT INFECTION
     Dosage: TRIMETHOPRIM COMPONENT OF TABLET: 22/23/24-OCT 80MG 0600 + 1800.
     Route: 048
     Dates: start: 20051022, end: 20051024
  25. TRIMETHOPRIM-SULFAMETHOXAZOLE [Concomitant]
     Dosage: SULFAMETHOXAZOLE COMPONENT OF TABLET: 22/23/24-OCT 400MG 0600 + 1800
     Route: 048
     Dates: start: 20051022, end: 20051024
  26. OXAZEPAM [Concomitant]
     Indication: ANXIETY
     Dosage: 1800 15MG; 2200 15MG.
     Route: 048
     Dates: start: 20051019, end: 20051019
  27. OXAZEPAM [Concomitant]
     Dosage: 15 MG 0600, 1000, 1400, 1800, 2200 EACH 20-OCT AND 21-OCT
     Route: 048
     Dates: start: 20051020, end: 20051021
  28. OXAZEPAM [Concomitant]
     Dosage: 15MG AT 0600, 1000 + 1400
     Route: 048
     Dates: start: 20051022, end: 20051022
  29. OXAZEPAM [Concomitant]
     Dosage: 15MG AT 1800 + 2200
     Route: 048
     Dates: start: 20051024, end: 20051024
  30. OXAZEPAM [Concomitant]
     Dosage: 15 MG AT 0600, 1200, 1800, 2200 ON 25/26/27-OCT
     Route: 048
     Dates: start: 20051025
  31. GABAPENTIN [Concomitant]
     Dosage: 300MG AT 2200
     Route: 048
     Dates: start: 20051019, end: 20051019
  32. GABAPENTIN [Concomitant]
     Dosage: 300MG AT 0600, 1400 + 2200
     Route: 048
     Dates: start: 20051020, end: 20051020
  33. GABAPENTIN [Concomitant]
     Dosage: 0600 300MG; 1200, 1800, 2200 400MG EACH
     Route: 048
     Dates: start: 20051021, end: 20051021
  34. GABAPENTIN [Concomitant]
     Dosage: 0600, 1200, 1800, 2200 400MG ON 22/23/24/25-OCT
     Route: 048
     Dates: start: 20051022, end: 20051025
  35. GABAPENTIN [Concomitant]
     Dosage: 400MG AT 0600 + 1800; 600MG 2200
     Route: 048
     Dates: start: 20051026, end: 20051026
  36. GABAPENTIN [Concomitant]
     Dosage: 600MG AT 0600, 1200, 1800, 2200.
     Route: 048
     Dates: start: 20051027
  37. AMOXICILLIN [Concomitant]
     Indication: INFECTION
     Dosage: 500MG 2200.
     Route: 048
     Dates: start: 20051024, end: 20051024
  38. AMOXICILLIN [Concomitant]
     Dosage: 500MG AT 0600, 1400, 2200 ON 25/26/27-OCT
     Route: 048
     Dates: start: 20051025
  39. FERROUS SULFATE TAB [Concomitant]
     Indication: IRON DEFICIENCY
     Route: 048
     Dates: start: 20051024, end: 20051024
  40. FERROUS SULFATE TAB [Concomitant]
     Dosage: 325 MG AT 0800, 1100, 1800
     Route: 048
     Dates: start: 20051025, end: 20051025
  41. OMEPRAZOLE [Concomitant]
     Dosage: 1800 20MG
     Route: 048
     Dates: start: 20051021, end: 20051021
  42. OMEPRAZOLE [Concomitant]
     Dosage: 20MG AT 0600 + 1800 ON 22/23/24/25/26/27-OCT
     Route: 048
     Dates: start: 20051022
  43. QUETIAPINE FUMARATE [Concomitant]
     Indication: INSOMNIA
     Dosage: 0400, 0950 50MG; 1725 25MG; 2200 100MG.
     Route: 048
     Dates: start: 20051020, end: 20051020
  44. QUETIAPINE FUMARATE [Concomitant]
     Dosage: 100MG 2115 22-OCT; 100MG 2100 23-OCT; 100MG 2000 24-OCT
     Route: 048
     Dates: start: 20051022, end: 20051024
  45. QUETIAPINE FUMARATE [Concomitant]
     Dosage: 25MG 0315; 50MG 2130; 100MG 2210
     Route: 048
     Dates: start: 20051025, end: 20051025
  46. QUETIAPINE FUMARATE [Concomitant]
     Dosage: 25MG AT 1920.
     Route: 048
     Dates: start: 20051027
  47. PROMETHAZINE HCL [Concomitant]
     Indication: NAUSEA
     Dosage: 19-OCT 25MG 1300; 20-OCT 25MG 1600.
     Route: 030
     Dates: start: 20051019, end: 20051020
  48. PROMETHAZINE HCL [Concomitant]
     Dosage: 0045 25MG PO; 0840 25MG IM.
     Route: 030
     Dates: start: 20051021, end: 20051021
  49. PROMETHAZINE HCL [Concomitant]
     Dosage: 23-OCT 25MG 1000; 24-OCT 25MG 2130.
     Route: 048
     Dates: start: 20051023, end: 20051024
  50. METHOCARBAMOL [Concomitant]
     Dosage: 19-OCT 1500MG 1515; NO DOSE ON 20-OCT; 21-OCT 1500MG 0840.
     Route: 048
     Dates: start: 20051019, end: 20051020
  51. METHOCARBAMOL [Concomitant]
     Dosage: 22-OCT 1500MG 1000 + 1815; NO DOSE 23-OCT; 24-OCT 1500MG 1125 + 2200.
     Route: 048
     Dates: start: 20051022, end: 20051024
  52. METHOCARBAMOL [Concomitant]
     Dosage: 1500MG 0045; 750MG 1835.
     Route: 048
     Dates: start: 20051026, end: 20051026
  53. METHOCARBAMOL [Concomitant]
     Dosage: 27-OCT 1500MG 0045, 1835.
     Route: 048
     Dates: start: 20051027
  54. CLONIDINE [Concomitant]
     Dosage: 24-OCT 0.1MG 1410, NO DOSE GIVEN ON 25-OCT; 26-OCT 0.1MG 1835.
     Route: 048
     Dates: start: 20051024, end: 20051026
  55. CLONIDINE [Concomitant]
     Dosage: 27-OCT 0.1MG 0900, 1920.
     Route: 048
     Dates: start: 20051027
  56. IBUPROFEN [Concomitant]
     Dosage: 600MG 1515.
     Route: 048
     Dates: start: 20051019, end: 20051019
  57. IBUPROFEN [Concomitant]
     Dosage: 600MG 0600, 1200 AND 1700 EACH ON 20/21/22/23/24/25-OCT
     Route: 048
     Dates: start: 20051020, end: 20051025
  58. IBUPROFEN [Concomitant]
     Dosage: 600MG 1045
     Route: 048
     Dates: start: 20051026, end: 20051026
  59. DOCUSATE SODIUM [Concomitant]
     Indication: CONSTIPATION
     Dosage: 100MG 1800
     Route: 048
     Dates: start: 20051024, end: 20051024
  60. DOCUSATE SODIUM [Concomitant]
     Dosage: 100MG 0600, 1800 EACH ON 25/26/27-OCT
     Route: 048
     Dates: start: 20051025
  61. CLOTRIMAZOLE [Concomitant]
     Dosage: 1 DOSE 2200 NIGHTLY
     Route: 067
     Dates: start: 20051024
  62. SIMETHICONE [Concomitant]
     Indication: FLATULENCE
     Dosage: 1 DOSE 1800 + 2200
     Route: 065
     Dates: start: 20051021, end: 20051021
  63. SIMETHICONE [Concomitant]
     Dosage: 1 DOSE 0600, 1200, 1800, 2200 ON 22/23/24/25/26/27-OCT
     Route: 065
     Dates: start: 20051022
  64. MULTIVITAMIN AND MINERAL SUPPLEMENT [Concomitant]
     Indication: VITAMIN SUPPLEMENTATION
     Dosage: 1 DOSE 0600 ON 20/21/22/23/24/25/26/27-OCT. CONTINUED DAILY DOSING THEREAFTER
     Route: 048
     Dates: start: 20051020
  65. THIAMIN [Concomitant]
     Indication: IRON DEFICIENCY
     Dosage: 100MG 0600 DAILY FOR 3 DAYS
     Route: 048
     Dates: start: 20051020, end: 20051022
  66. FOLATE SODIUM [Concomitant]
     Indication: DRUG USE FOR UNKNOWN INDICATION
     Dosage: 1 DOSE AT 0600 DAILY FOR 3 DAYS
     Route: 048
     Dates: start: 20051020, end: 20051022
  67. MAGNESIUM OXIDE [Concomitant]
     Indication: DRUG USE FOR UNKNOWN INDICATION
     Dosage: 2200 400MG
     Route: 048
     Dates: start: 20051019, end: 20051019
  68. MAGNESIUM OXIDE [Concomitant]
     Dosage: 400 MG AT 0600, 1400, 2200 ON 20/21/22-OCT
     Route: 048
     Dates: start: 20051020, end: 20051022
  69. MAGNESIUM OXIDE [Concomitant]
     Dosage: 400MG 0600, 1400.
     Route: 048
     Dates: start: 20051023, end: 20051023

REACTIONS (2)
  - OEDEMA PERIPHERAL [None]
  - VOMITING [None]
